FAERS Safety Report 7458047-7 (Version None)
Quarter: 2011Q2

REPORT INFORMATION
  Report Type: 
  Country: None (occurrence: None)
  Receive Date: 20110504
  Receipt Date: 20110428
  Transmission Date: 20111010
  Serious: Yes (Other)
  Sender: FDA-Public Use
  Company Number: FR-PFIZER INC-2011091317

PATIENT
  Age: 46 Year
  Sex: Male

DRUGS (1)
  1. LYRICA [Suspect]
     Indication: SCIATICA
     Dosage: 300 MG, 2X/DAY
     Route: 048
     Dates: start: 20110307

REACTIONS (8)
  - DISINHIBITION [None]
  - EUPHORIC MOOD [None]
  - COORDINATION ABNORMAL [None]
  - CONFUSIONAL STATE [None]
  - DIZZINESS [None]
  - DEPENDENCE [None]
  - DRUG PRESCRIBING ERROR [None]
  - DEPRESSION [None]
